FAERS Safety Report 4675528-X (Version None)
Quarter: 2005Q2

REPORT INFORMATION
  Report Type: 
  Country: None (occurrence: None)
  Receive Date: 20050527
  Receipt Date: 20050404
  Transmission Date: 20051028
  Serious: No
  Sender: FDA-Public Use
  Company Number: US-BRISTOL-MYERS SQUIBB COMPANY-12922191

PATIENT

DRUGS (1)
  1. ABILIFY [Suspect]
     Indication: AGGRESSION

REACTIONS (2)
  - NAUSEA [None]
  - VOMITING [None]
